FAERS Safety Report 8363061-3 (Version None)
Quarter: 2012Q2

REPORT INFORMATION
  Report Type: 
  Country: None (occurrence: None)
  Receive Date: 20120516
  Receipt Date: 20111017
  Transmission Date: 20120825
  Serious: No
  Sender: FDA-Public Use
  Company Number: US-ALEXION-A201101573

PATIENT
  Sex: Male

DRUGS (2)
  1. CHEMOTHERAPEUTICS NOS [Suspect]
  2. SOLIRIS [Suspect]
     Indication: PAROXYSMAL NOCTURNAL HAEMOGLOBINURIA
     Dosage: 600 MG, QW
     Route: 042
     Dates: start: 20111013

REACTIONS (2)
  - CHILLS [None]
  - FEELING JITTERY [None]
